FAERS Safety Report 12360598 (Version 3)
Quarter: 2016Q2

REPORT INFORMATION
  Report Type: Spontaneous
  Country: FR (occurrence: FR)
  Receive Date: 20160512
  Receipt Date: 20160617
  Transmission Date: 20160815
  Serious: Yes (Hospitalization, Other)
  Sender: FDA-Public Use
  Company Number: FR-009507513-1605FRA001516

PATIENT
  Sex: Female

DRUGS (15)
  1. ZOLPIDEM [Concomitant]
     Active Substance: ZOLPIDEM\ZOLPIDEM TARTRATE
  2. COLCHICINE. [Suspect]
     Active Substance: COLCHICINE
     Dosage: 1 DF PER DAY
     Route: 048
     Dates: start: 201601, end: 20160417
  3. ZYLORIC [Suspect]
     Active Substance: ALLOPURINOL
     Dosage: 200 MG, QD
     Route: 048
  4. DAFALGAN [Concomitant]
     Active Substance: ACETAMINOPHEN
  5. ALLOPURINOL. [Concomitant]
     Active Substance: ALLOPURINOL
     Dosage: STRENGTH 200 (UNIT UNKNOWN), 1 TABLET PER DAY
  6. NOVOMIX 30 [Concomitant]
     Active Substance: INSULIN ASPART
     Dosage: UNK
  7. DAIVOBET [Concomitant]
     Active Substance: BETAMETHASONE DIPROPIONATE\CALCIPOTRIENE
  8. UVEDOSE [Concomitant]
     Active Substance: CHOLECALCIFEROL
     Dosage: 1 VIAL PER MONTH
  9. ZYLORIC [Suspect]
     Active Substance: ALLOPURINOL
     Dosage: 100 MG, QD
     Route: 048
  10. ASPIRIN PROTECT [Concomitant]
     Active Substance: ASPIRIN
     Dosage: STRENGTH 100 (UNIT UNKNOWN)
  11. NUROFEN [Concomitant]
     Active Substance: IBUPROFEN
     Dosage: STRENGTH 400 (UNIT UNKNOWN), 1 DF, PRN
  12. EZETROL [Suspect]
     Active Substance: EZETIMIBE
     Dosage: 1 TABLET PER DAY
     Dates: end: 20160417
  13. ZYLORIC [Suspect]
     Active Substance: ALLOPURINOL
     Dosage: 100 MG, QD
     Route: 048
     Dates: start: 2016
  14. DISULONE [Concomitant]
     Active Substance: DAPSONE\FERROUS OXALATE
     Dosage: STRENGTH 100 (UNIT UNKNOWN), 0.5 DF PER DAY
  15. VOLTARENE [Concomitant]
     Active Substance: DICLOFENAC SODIUM
     Dosage: 2 DF, QD

REACTIONS (7)
  - General physical health deterioration [Recovered/Resolved]
  - Blood creatine phosphokinase increased [Recovered/Resolved]
  - Gastrointestinal motility disorder [Recovered/Resolved]
  - Anaemia [Recovered/Resolved with Sequelae]
  - Myositis [Recovered/Resolved with Sequelae]
  - Acute kidney injury [Recovered/Resolved]
  - Transaminases increased [Recovered/Resolved]
